FAERS Safety Report 20577471 (Version 1)
Quarter: 2022Q1

REPORT INFORMATION
  Report Type: Spontaneous
  Country: US (occurrence: US)
  Receive Date: 20220310
  Receipt Date: 20220310
  Transmission Date: 20220423
  Serious: Yes (Other)
  Sender: FDA-Public Use
  Company Number: US-PFIZER INC-202101029692

PATIENT
  Age: 32 Year
  Sex: Female

DRUGS (1)
  1. XELJANZ [Suspect]
     Active Substance: TOFACITINIB CITRATE
     Indication: Crohn^s disease
     Dosage: 10 MG

REACTIONS (8)
  - Crohn^s disease [Unknown]
  - Pain [Unknown]
  - Swelling [Unknown]
  - Irritability [Unknown]
  - Fatigue [Unknown]
  - Gastrointestinal disorder [Recovering/Resolving]
  - Off label use [Unknown]
  - Product dose omission issue [Unknown]
